FAERS Safety Report 9739393 (Version 1)
Quarter: 2013Q4

REPORT INFORMATION
  Report Type: Spontaneous
  Country: US (occurrence: US)
  Receive Date: 20131209
  Receipt Date: 20131209
  Transmission Date: 20140711
  Serious: Yes (Other)
  Sender: FDA-Public Use
  Company Number: US-BRISTOL-MYERS SQUIBB COMPANY-17120825

PATIENT
  Age: 63 Year
  Sex: Female

DRUGS (1)
  1. IXEMPRA [Suspect]
     Dosage: NO OF DOSES:2

REACTIONS (1)
  - Pancytopenia [Unknown]
